FAERS Safety Report 23068245 (Version 1)
Quarter: 2023Q4

REPORT INFORMATION
  Report Type: Spontaneous
  Country: CA (occurrence: None)
  Receive Date: 20231013
  Receipt Date: 20231013
  Transmission Date: 20240109
  Serious: Yes (Other)
  Sender: FDA-Public Use
  Company Number: None

PATIENT
  Age: 74 Year
  Sex: Female
  Weight: 69.3 kg

DRUGS (3)
  1. LIPITOR [Suspect]
     Active Substance: ATORVASTATIN CALCIUM
     Indication: Blood cholesterol increased
     Dosage: FREQUENCY : AT BEDTIME;?
     Route: 048
  2. ESTROGEL [Concomitant]
     Active Substance: ESTRADIOL
  3. OXAZEPAM [Concomitant]
     Active Substance: OXAZEPAM

REACTIONS (3)
  - Pain in extremity [None]
  - Anxiety [None]
  - Myalgia [None]

NARRATIVE: CASE EVENT DATE: 20230821
